FAERS Safety Report 5320127-X (Version None)
Quarter: 2007Q2

REPORT INFORMATION
  Report Type: 
  Country: None (occurrence: None)
  Receive Date: 20070503
  Receipt Date: 20070420
  Transmission Date: 20071010
  Serious: Yes (Other)
  Sender: FDA-Public Use
  Company Number: 2007RL000185

PATIENT
  Sex: 0

DRUGS (2)
  1. DYNACIRC CR [Suspect]
     Indication: DRUG USE FOR UNKNOWN INDICATION
     Dosage: PO
     Route: 048
  2. MULTIPLE MEDICATIONS (NOS) [Concomitant]

REACTIONS (1)
  - HAEMOLYTIC ANAEMIA [None]
